FAERS Safety Report 6550938-4 (Version None)
Quarter: 2010Q1

REPORT INFORMATION
  Report Type: 
  Country: None (occurrence: None)
  Receive Date: 20100125
  Receipt Date: 20100115
  Transmission Date: 20100710
  Serious: Yes (Hospitalization)
  Sender: FDA-Public Use
  Company Number: DE-ABBOTT-10P-062-0619468-00

PATIENT
  Sex: Male
  Weight: 65 kg

DRUGS (2)
  1. KALETRA [Suspect]
     Indication: HIV INFECTION
  2. TRUVADA [Suspect]
     Indication: HIV INFECTION

REACTIONS (3)
  - ASTHENIA [None]
  - NASOPHARYNGITIS [None]
  - PYREXIA [None]
